FAERS Safety Report 5982537-7 (Version None)
Quarter: 2008Q4

REPORT INFORMATION
  Report Type: 
  Country: None (occurrence: None)
  Receive Date: 20081205
  Receipt Date: 20081205
  Transmission Date: 20090506
  Serious: No
  Sender: FDA-Public Use
  Company Number: None

PATIENT
  Age: 73 Year
  Sex: Male
  Weight: 112.9457 kg

DRUGS (1)
  1. DETEMIR INSULIN U-100 NOVO NORDISK [Suspect]
     Indication: DIABETES MELLITUS
     Dosage: 60 UNITS ONCE DAILY SQ
     Route: 058
     Dates: start: 20081014, end: 20081130

REACTIONS (3)
  - ERYTHEMA [None]
  - INJECTION SITE REACTION [None]
  - PRURITUS [None]
